FAERS Safety Report 22245095 (Version 2)
Quarter: 2024Q3

REPORT INFORMATION
  Report Type: Spontaneous
  Country: BG (occurrence: BG)
  Receive Date: 20230424
  Receipt Date: 20240712
  Transmission Date: 20241017
  Serious: Yes (Other)
  Sender: ASTELLAS
  Company Number: BG-ASTELLAS-2023US012277

PATIENT
  Age: 79 Year
  Sex: Male

DRUGS (4)
  1. XTANDI [Suspect]
     Active Substance: ENZALUTAMIDE
     Indication: Prostate cancer
     Route: 048
     Dates: start: 201906
  2. BUSERELIN ACETATE [Concomitant]
     Active Substance: BUSERELIN ACETATE
     Indication: Prostate cancer
     Dosage: 9.45 MG, EVERY 3 MONTHS
     Route: 058
     Dates: start: 201402
  3. ABIRATERONE ACETATE [Concomitant]
     Active Substance: ABIRATERONE ACETATE
     Indication: Product used for unknown indication
     Dosage: UNK UNK, UNKNOWN FREQ.
     Route: 065
  4. PREDNISOLONE [Concomitant]
     Active Substance: PREDNISOLONE
     Indication: Product used for unknown indication
     Dosage: UNK UNK, UNKNOWN FREQ.
     Route: 065

REACTIONS (4)
  - Malignant neoplasm progression [Unknown]
  - Lymphadenopathy [Unknown]
  - Bladder cancer [Unknown]
  - Transitional cell carcinoma [Unknown]

NARRATIVE: CASE EVENT DATE: 20191101
